FAERS Safety Report 4552942-4 (Version None)
Quarter: 2005Q1

REPORT INFORMATION
  Report Type: 
  Country: None (occurrence: None)
  Receive Date: 20050113
  Receipt Date: 20041228
  Transmission Date: 20050727
  Serious: Yes (Death)
  Sender: FDA-Public Use
  Company Number: 2004BI002199

PATIENT
  Age: 41 Year
  Sex: Female
  Weight: 104.3273 kg

DRUGS (12)
  1. AVONEX [Suspect]
     Indication: RELAPSING-REMITTING MULTIPLE SCLEROSIS
     Dosage: 30 UG; QW; IM
     Route: 030
     Dates: start: 20030202, end: 20041201
  2. METHYLPREDNISOLONE [Concomitant]
  3. METHOTREXATE / PLACEBO [Concomitant]
  4. ALEVE [Concomitant]
  5. ZOCOR [Concomitant]
  6. XANAX [Concomitant]
  7. FOLIC ACID [Concomitant]
  8. ACIPHEX [Concomitant]
  9. WELLBUTRIN [Concomitant]
  10. KLONOPIN [Concomitant]
  11. CALCIUM GLUCONATE [Concomitant]
  12. MULTI-VIT [Concomitant]

REACTIONS (3)
  - BLOOD TRIGLYCERIDES INCREASED [None]
  - MYOCARDIAL INFARCTION [None]
  - SUDDEN CARDIAC DEATH [None]
